FAERS Safety Report 12708533 (Version 2)
Quarter: 2016Q3

REPORT INFORMATION
  Report Type: Spontaneous
  Country: GB (occurrence: GB)
  Receive Date: 20160901
  Receipt Date: 20160926
  Transmission Date: 20161109
  Serious: Yes (Hospitalization)
  Sender: FDA-Public Use
  Company Number: GB-APOPHARMA-2016AP010745

PATIENT
  Age: 48 Year
  Sex: Female

DRUGS (2)
  1. NTBC [Suspect]
     Active Substance: NITISINONE
     Indication: ALKAPTONURIA
     Dosage: 2 MG, Q.O.D.
     Route: 065
  2. FERRIPROX [Suspect]
     Active Substance: DEFERIPRONE
     Indication: THALASSAEMIA BETA
     Dosage: UNK
     Route: 048

REACTIONS (1)
  - Neurological symptom [Unknown]
